FAERS Safety Report 11909939 (Version 2)
Quarter: 2016Q1

REPORT INFORMATION
  Report Type: Report from Study
  Country: BR (occurrence: BR)
  Receive Date: 20160112
  Receipt Date: 20160122
  Transmission Date: 20160526
  Serious: Yes (Disabling, Other)
  Sender: FDA-Public Use
  Company Number: PHHY2016BR001911

PATIENT
  Sex: Female

DRUGS (1)
  1. DIOVAN HCT [Suspect]
     Active Substance: HYDROCHLOROTHIAZIDE\VALSARTAN
     Indication: HEART RATE IRREGULAR
     Dosage: 1 DF (160/12.5 MG), QD
     Route: 065
     Dates: start: 2005

REACTIONS (6)
  - Parkinson^s disease [Unknown]
  - Product use issue [Unknown]
  - Spinal disorder [Unknown]
  - Pain [Unknown]
  - Mobility decreased [Unknown]
  - Depression [Unknown]

NARRATIVE: CASE EVENT DATE: 2013
